FAERS Safety Report 12698687 (Version 1)
Quarter: 2016Q3

REPORT INFORMATION
  Report Type: Spontaneous
  Country: US (occurrence: US)
  Receive Date: 20160830
  Receipt Date: 20160830
  Transmission Date: 20161109
  Serious: No
  Sender: FDA-Public Use
  Company Number: US-PERRIGO-16US015130

PATIENT
  Age: 43 Year
  Sex: Female
  Weight: 51.25 kg

DRUGS (6)
  1. EVAMIST [Suspect]
     Active Substance: ESTRADIOL
     Dosage: UNKNOWN, QD
     Route: 062
     Dates: start: 201604
  2. BALSALAZIDE [Concomitant]
     Active Substance: BALSALAZIDE
     Indication: INFLAMMATORY BOWEL DISEASE
     Dosage: UNK
     Route: 065
  3. LIBRAX [Concomitant]
     Active Substance: CHLORDIAZEPOXIDE HYDROCHLORIDE\CLIDINIUM BROMIDE
     Indication: IRRITABLE BOWEL SYNDROME
     Dosage: UNK
     Route: 065
     Dates: start: 2015
  4. EVAMIST [Suspect]
     Active Substance: ESTRADIOL
     Indication: ARTIFICIAL MENOPAUSE
     Dosage: 3.06 TO 4.59 MG, QD
     Route: 062
     Dates: start: 201511, end: 201604
  5. TESTOSTERONE. [Concomitant]
     Active Substance: TESTOSTERONE
     Indication: HORMONE REPLACEMENT THERAPY
     Dosage: UNK
     Route: 061
  6. PROGESTERONE. [Concomitant]
     Active Substance: PROGESTERONE
     Indication: HORMONE REPLACEMENT THERAPY
     Dosage: UNK
     Route: 061

REACTIONS (2)
  - Incorrect dose administered [Unknown]
  - Underdose [Unknown]

NARRATIVE: CASE EVENT DATE: 201511
